FAERS Safety Report 20439285 (Version 2)
Quarter: 2022Q1

REPORT INFORMATION
  Report Type: Spontaneous
  Country: AU (occurrence: AU)
  Receive Date: 20220207
  Receipt Date: 20220210
  Transmission Date: 20220423
  Serious: Yes (Other)
  Sender: FDA-Public Use
  Company Number: AU-GE HEALTHCARE-2022CSU000755

PATIENT
  Age: 19 Year
  Sex: Female
  Weight: 72 kg

DRUGS (2)
  1. OMNIPAQUE [Suspect]
     Active Substance: IOHEXOL
     Indication: Computerised tomogram abdomen
     Dosage: 75 ML, SINGLE
     Route: 042
     Dates: start: 20220203, end: 20220203
  2. OMNIPAQUE [Suspect]
     Active Substance: IOHEXOL
     Indication: Abdominal pain

REACTIONS (1)
  - Contrast media reaction [Recovering/Resolving]

NARRATIVE: CASE EVENT DATE: 20220203
